FAERS Safety Report 18853107 (Version 1)
Quarter: 2021Q1

REPORT INFORMATION
  Report Type: Spontaneous
  Country: US (occurrence: US)
  Receive Date: 20210205
  Receipt Date: 20210205
  Transmission Date: 20210420
  Serious: Yes (Other)
  Sender: FDA-Public Use
  Company Number: US-ASTRAZENECA-2021A027129

PATIENT
  Sex: Female

DRUGS (1)
  1. BYDUREON BCISE [Suspect]
     Active Substance: EXENATIDE
     Indication: TYPE 2 DIABETES MELLITUS
     Route: 058
     Dates: start: 20190516

REACTIONS (8)
  - Injection site mass [Unknown]
  - Drug delivery system issue [Unknown]
  - Breast cancer [Unknown]
  - Injection site haemorrhage [Unknown]
  - Device breakage [Unknown]
  - Device issue [Unknown]
  - Drug hypersensitivity [Unknown]
  - Device leakage [Unknown]
